FAERS Safety Report 11458893 (Version 3)
Quarter: 2016Q1

REPORT INFORMATION
  Report Type: Spontaneous
  Country: US (occurrence: US)
  Receive Date: 20150904
  Receipt Date: 20160114
  Transmission Date: 20160525
  Serious: Yes (Other)
  Sender: FDA-Public Use
  Company Number: US-PFIZER INC-2015292027

PATIENT
  Age: 67 Year
  Sex: Female

DRUGS (15)
  1. NEURONTIN [Suspect]
     Active Substance: GABAPENTIN
     Indication: NEURALGIA
     Dosage: 1200MG ( 600MG X2) Q6
  2. NEXIUM [Concomitant]
     Active Substance: ESOMEPRAZOLE MAGNESIUM
     Dosage: 1X/DAY(40 QD)
  3. BENADRYL [Concomitant]
     Active Substance: DIPHENHYDRAMINE HYDROCHLORIDE
     Dosage: 2X/DAY(50 BID)
  4. NITROSTAT [Concomitant]
     Active Substance: NITROGLYCERIN
     Dosage: AS NEEDED(0.4 PRN)
  5. VENTOLIN HFA [Concomitant]
     Active Substance: ALBUTEROL SULFATE
     Dosage: 90 MCG (2 PUFFS PRN)
  6. LANTUS [Concomitant]
     Active Substance: INSULIN GLARGINE
     Dosage: (50 U QHS)
  7. ADVAIR DISKUS [Concomitant]
     Active Substance: FLUTICASONE PROPIONATE\SALMETEROL XINAFOATE
     Dosage: UNK, 2X/DAY(500/50 BID)
  8. FENOFIBRATE. [Concomitant]
     Active Substance: FENOFIBRATE
     Dosage: 1X/DAY(160 QD)
  9. CELEBREX [Concomitant]
     Active Substance: CELECOXIB
     Dosage: 1X/DAY(200 QD)
  10. LASIX [Concomitant]
     Active Substance: FUROSEMIDE
     Dosage: 1X/DAY(80 QD)
  11. LIPITOR [Concomitant]
     Active Substance: ATORVASTATIN CALCIUM
     Dosage: 1X/DAY(40 QD)
  12. CLONAZEPAM. [Concomitant]
     Active Substance: CLONAZEPAM
     Dosage: 2X/DAY(1 BID)
  13. TIZANIDINE. [Concomitant]
     Active Substance: TIZANIDINE
     Dosage: (8 QHS)
  14. NORCO [Concomitant]
     Active Substance: ACETAMINOPHEN\HYDROCODONE BITARTRATE
     Dosage: 4X/DAY (PARACETAMOL 325 MG / HYDROCODONE 10 MG)
  15. METOPROLOL. [Concomitant]
     Active Substance: METOPROLOL
     Dosage: 3X/DAY(100 TID)

REACTIONS (7)
  - Peripheral swelling [Unknown]
  - Product use issue [Unknown]
  - Malaise [Unknown]
  - Myocardial infarction [Unknown]
  - Drug withdrawal syndrome [Unknown]
  - Suicidal ideation [Unknown]
  - Depression [Unknown]
